FAERS Safety Report 10461120 (Version 1)
Quarter: 2014Q3

REPORT INFORMATION
  Report Type: Spontaneous
  Country: US (occurrence: US)
  Receive Date: 20140918
  Receipt Date: 20140918
  Transmission Date: 20150326
  Serious: Yes (Other)
  Sender: FDA-Public Use
  Company Number: US-BAYER-2014-139005

PATIENT
  Age: 65 Year
  Sex: Female
  Weight: 87.53 kg

DRUGS (11)
  1. ALEVE [Suspect]
     Active Substance: NAPROXEN SODIUM
     Indication: OSTEOARTHRITIS
  2. ALEVE [Suspect]
     Active Substance: NAPROXEN SODIUM
     Indication: FIBROMYALGIA
  3. NEXIUM [Concomitant]
     Active Substance: ESOMEPRAZOLE MAGNESIUM
     Indication: DYSPEPSIA
  4. RELAFEN [Suspect]
     Active Substance: NABUMETONE
     Indication: RHEUMATOID ARTHRITIS
  5. RELAFEN [Suspect]
     Active Substance: NABUMETONE
     Indication: OSTEOARTHRITIS
  6. VOLTAREN [DICLOFENAC] [Suspect]
     Active Substance: DICLOFENAC SODIUM
  7. NEXIUM [Concomitant]
     Active Substance: ESOMEPRAZOLE MAGNESIUM
     Indication: GASTROOESOPHAGEAL REFLUX DISEASE
  8. RELAFEN [Suspect]
     Active Substance: NABUMETONE
     Indication: FIBROMYALGIA
  9. NAPROXEN. [Suspect]
     Active Substance: NAPROXEN
  10. MOBIC [Suspect]
     Active Substance: MELOXICAM
  11. ALEVE [Suspect]
     Active Substance: NAPROXEN SODIUM
     Indication: RHEUMATOID ARTHRITIS
     Route: 048

REACTIONS (4)
  - Rash vesicular [Unknown]
  - Haematochezia [Unknown]
  - Rash [Unknown]
  - Hypersensitivity [Unknown]
